FAERS Safety Report 4313836-2 (Version None)
Quarter: 2004Q1

REPORT INFORMATION
  Report Type: 
  Country: None (occurrence: None)
  Receive Date: 20040308
  Receipt Date: 20040225
  Transmission Date: 20041129
  Serious: Yes (Hospitalization)
  Sender: FDA-Public Use
  Company Number: WAES 0402USA01894

PATIENT
  Age: 70 Year
  Sex: Female

DRUGS (4)
  1. [THERAPY UNSPECIFIED] [Concomitant]
     Indication: DIABETES MELLITUS
  2. [THERAPY UNSPECIFIED] [Concomitant]
     Indication: HYPERLIPIDAEMIA
  3. LASIX [Concomitant]
     Indication: CARDIAC FAILURE
  4. SINGULAIR [Suspect]
     Indication: ASTHMA
     Route: 048
     Dates: start: 20010101, end: 20040101

REACTIONS (3)
  - ASTHMA [None]
  - GASTRITIS [None]
  - PANCREATITIS [None]
